FAERS Safety Report 24408340 (Version 1)
Quarter: 2024Q4

REPORT INFORMATION
  Report Type: Spontaneous
  Country: SK (occurrence: SK)
  Receive Date: 20241007
  Receipt Date: 20241007
  Transmission Date: 20250114
  Serious: Yes (Other)
  Sender: SANDOZ
  Company Number: SK-JNJFOC-20240960072

PATIENT
  Age: 69 Year
  Sex: Female

DRUGS (8)
  1. METHOTREXATE [Suspect]
     Active Substance: METHOTREXATE
     Dosage: 15 MG
     Route: 065
     Dates: start: 200905
  2. METHOTREXATE [Suspect]
     Active Substance: METHOTREXATE
     Indication: Rheumatoid arthritis
     Dosage: 20 MG
     Route: 058
     Dates: start: 20190509
  3. METHOTREXATE [Suspect]
     Active Substance: METHOTREXATE
     Indication: Rheumatoid arthritis
     Dosage: 20 MG
     Route: 048
  4. PREDNISONE [Suspect]
     Active Substance: PREDNISONE
     Indication: Rheumatoid arthritis
     Dosage: 15 MG, QD
     Route: 065
     Dates: start: 200903
  5. PREDNISONE [Suspect]
     Active Substance: PREDNISONE
     Dosage: 5 MG, QD
     Route: 065
     Dates: start: 201906
  6. PREDNISONE [Suspect]
     Active Substance: PREDNISONE
     Dosage: (POSSIBILITY TO INCREASE TO 20 MG DURING PAIN)
     Route: 065
     Dates: start: 201002
  7. PREDNISONE [Suspect]
     Active Substance: PREDNISONE
     Dosage: 60 MG, QD
     Route: 065
     Dates: start: 200905
  8. SIMPONI [Suspect]
     Active Substance: GOLIMUMAB
     Indication: Rheumatoid arthritis
     Dosage: 50 MG (FORMULATION: SOLUTION FOR INJECTION IN PRE-FILLED PEN)
     Route: 058
     Dates: start: 201011, end: 201607

REACTIONS (7)
  - Pickwickian syndrome [Unknown]
  - Chronic respiratory failure [Unknown]
  - Mycobacterium tuberculosis complex test positive [Recovered/Resolved]
  - Chronic obstructive pulmonary disease [Unknown]
  - Superficial vein thrombosis [Unknown]
  - Respiratory tract infection [Not Recovered/Not Resolved]
  - Herpes zoster [Unknown]

NARRATIVE: CASE EVENT DATE: 20120301
